FAERS Safety Report 14129226 (Version 1)
Quarter: 2017Q4

REPORT INFORMATION
  Report Type: Report from Study
  Country: BE (occurrence: BE)
  Receive Date: 20171026
  Receipt Date: 20171026
  Transmission Date: 20180321
  Serious: Yes (Other)
  Sender: FDA-Public Use
  Company Number: BE-MYLANLABS-2017M1066543

PATIENT

DRUGS (5)
  1. CETUXIMAB. [Suspect]
     Active Substance: CETUXIMAB
     Dosage: (21 DAYS CYCLE OF TPF-E THERAPY) 250MG/M2 WEEKLY
     Route: 065
  2. FLUOROURACIL. [Suspect]
     Active Substance: FLUOROURACIL
     Indication: SQUAMOUS CELL CARCINOMA OF HEAD AND NECK
     Dosage: (21 DAYS CYCLE OF TPF-E THERAPY) 750MG/M2/DAY AS CONTINUOUS INFUSION ON DAY 1-5
     Route: 050
  3. CETUXIMAB. [Suspect]
     Active Substance: CETUXIMAB
     Indication: SQUAMOUS CELL CARCINOMA OF HEAD AND NECK
     Dosage: (21 DAYS CYCLE OF TPF-E THERAPY) A LOADING DOSE OF 400MG/M2 ON D1 FOLLOWED BY 250MG/M2 WEEKLY
     Route: 065
  4. CISPLATIN. [Suspect]
     Active Substance: CISPLATIN
     Indication: SQUAMOUS CELL CARCINOMA OF HEAD AND NECK
     Dosage: (21 DAYS CYCLE OF TPF-E THERAPY) 75MG/M2 ON DAY 1
     Route: 065
  5. DOCETAXEL. [Suspect]
     Active Substance: DOCETAXEL
     Indication: SQUAMOUS CELL CARCINOMA OF HEAD AND NECK
     Dosage: (21 DAYS CYCLE OF TPF-E THERAPY) 75MG/M2 ON DAY 1
     Route: 065

REACTIONS (1)
  - Intestinal perforation [Unknown]
